FAERS Safety Report 4318965-5 (Version None)
Quarter: 2004Q1

REPORT INFORMATION
  Report Type: 
  Country: None (occurrence: None)
  Receive Date: 20040316
  Receipt Date: 20040304
  Transmission Date: 20041129
  Serious: Yes (Death, Hospitalization)
  Sender: FDA-Public Use
  Company Number: F01200400450

PATIENT
  Age: 66 Year
  Sex: Female

DRUGS (12)
  1. OXALIPLATIN - SOLUTION - 208 MG [Suspect]
     Indication: COLORECTAL CANCER METASTATIC
     Dosage: 208 MG, INTRAVENOUS NOS
     Route: 042
     Dates: start: 20040213, end: 20040213
  2. CAPECITABINE - TABLET - 1600MG [Suspect]
     Dosage: 1600 MG BID, ORAL
     Route: 048
     Dates: start: 20040109, end: 20040208
  3. NOLOTIL (METAMIZOLE MAGNESIUM) [Concomitant]
  4. DUPHALAC [Concomitant]
  5. ADOLONTA (TRAMADOL HCL) [Concomitant]
  6. BOREA (MEGESTROL ACETATE) [Concomitant]
  7. FERRITIN [Concomitant]
  8. OMEPRAZOLE [Concomitant]
  9. ACETAMINOPHEN [Concomitant]
  10. SYNALAR OINTMENT (FLUCONAZOLE ACETONIDE) [Concomitant]
  11. CEFEPIME [Concomitant]
  12. PROFERRIN (IRON POLYPEPTIDE) [Concomitant]

REACTIONS (11)
  - ANAEMIA [None]
  - APATHY [None]
  - INTESTINAL OBSTRUCTION [None]
  - LEUKOCYTOSIS [None]
  - NEUTROPENIA [None]
  - PERITONITIS [None]
  - PYREXIA [None]
  - SEPTIC SHOCK [None]
  - SOMNOLENCE [None]
  - THROMBOCYTOPENIA [None]
  - UPPER GASTROINTESTINAL HAEMORRHAGE [None]
